FAERS Safety Report 4966750-3 (Version None)
Quarter: 2006Q2

REPORT INFORMATION
  Report Type: 
  Country: None (occurrence: None)
  Receive Date: 20060407
  Receipt Date: 20051209
  Transmission Date: 20061013
  Serious: Yes (Hospitalization)
  Sender: FDA-Public Use
  Company Number: US-MERCK-0512USA02194

PATIENT
  Age: 63 Year
  Sex: Male
  Weight: 105 kg

DRUGS (7)
  1. VIOXX [Suspect]
     Indication: BACK PAIN
     Route: 048
     Dates: start: 19991001, end: 20000901
  2. VIOXX [Suspect]
     Route: 048
     Dates: start: 20001001
  3. VIOXX [Suspect]
     Indication: ARTHRITIS
     Route: 048
     Dates: start: 19991001, end: 20000901
  4. VIOXX [Suspect]
     Route: 048
     Dates: start: 20001001
  5. LOPRESSOR [Concomitant]
     Indication: HYPERTENSION
     Route: 065
  6. DYAZIDE [Concomitant]
     Indication: HYPERTENSION
     Route: 065
  7. GLUCOTROL XL [Concomitant]
     Indication: DIABETES MELLITUS
     Route: 065

REACTIONS (20)
  - ANGINA UNSTABLE [None]
  - ARTERIOSCLEROSIS CORONARY ARTERY [None]
  - BLOOD CHOLESTEROL INCREASED [None]
  - BLOOD TRIGLYCERIDES INCREASED [None]
  - CORONARY ARTERY STENOSIS [None]
  - CORONARY OSTIAL STENOSIS [None]
  - DEPRESSION [None]
  - FALL [None]
  - HYPERLIPIDAEMIA [None]
  - HYPOTENSION [None]
  - ISCHAEMIC STROKE [None]
  - LACUNAR INFARCTION [None]
  - MENISCUS LESION [None]
  - MYOCARDIAL INFARCTION [None]
  - OEDEMA [None]
  - OVERDOSE [None]
  - PAIN [None]
  - PARAESTHESIA [None]
  - PLEURAL EFFUSION [None]
  - TRANSIENT ISCHAEMIC ATTACK [None]
